FAERS Safety Report 7166852-X (Version None)
Quarter: 2010Q4

REPORT INFORMATION
  Report Type: 
  Country: None (occurrence: None)
  Receive Date: 20101213
  Receipt Date: 20101213
  Transmission Date: 20110411
  Serious: Yes (Other)
  Sender: FDA-Public Use
  Company Number: None

PATIENT
  Age: 45 Year
  Sex: Female
  Weight: 79.8331 kg

DRUGS (1)
  1. TRIAMTERENE 37.5/25 MYLAN [Suspect]
     Indication: HYPERTENSION
     Dosage: 1 TABLET DAILY PO
     Route: 048
     Dates: start: 20101101, end: 20101210

REACTIONS (7)
  - ACTIVITIES OF DAILY LIVING IMPAIRED [None]
  - BALANCE DISORDER [None]
  - DIZZINESS [None]
  - HEADACHE [None]
  - IMPAIRED WORK ABILITY [None]
  - PRODUCT FORMULATION ISSUE [None]
  - VISION BLURRED [None]
